FAERS Safety Report 4715714-3 (Version None)
Quarter: 2005Q2

REPORT INFORMATION
  Report Type: 
  Country: None (occurrence: None)
  Receive Date: 20050630
  Receipt Date: 20050518
  Transmission Date: 20051028
  Serious: No
  Sender: FDA-Public Use
  Company Number: 214266

PATIENT
  Age: 72 Year
  Sex: Female

DRUGS (2)
  1. AVASTIN [Suspect]
     Indication: RENAL CELL CARCINOMA STAGE UNSPECIFIED
     Dosage: 825 MG, Q2W, INTRAVENOUS
     Route: 042
     Dates: start: 20050502, end: 20050517
  2. ARANESP [Concomitant]

REACTIONS (4)
  - CHILLS [None]
  - HYPERTENSION [None]
  - PYREXIA [None]
  - VOMITING [None]
